FAERS Safety Report 10412872 (Version 1)
Quarter: 2014Q3

REPORT INFORMATION
  Report Type: Spontaneous
  Country: US (occurrence: None)
  Receive Date: 20140825
  Receipt Date: 20140825
  Transmission Date: 20150326
  Serious: Yes (Other)
  Sender: FDA-Public Use
  Company Number: ADR-2012-02277

PATIENT
  Sex: Female

DRUGS (4)
  1. BACLOFEN INTRATHECAL (1275.0 MCG/ML) [Suspect]
     Active Substance: BACLOFEN
     Indication: PAIN
  2. CLONIDINE. [Suspect]
     Active Substance: CLONIDINE
     Route: 037
  3. MARCAINE [Suspect]
     Active Substance: BUPIVACAINE HYDROCHLORIDE
     Route: 037
  4. HYDROMORPHONE INTRATHECAL (28 MG/ML) [Suspect]
     Active Substance: HYDROMORPHONE

REACTIONS (15)
  - Hip fracture [None]
  - Pain [None]
  - Hypertension [None]
  - Lower limb fracture [None]
  - Therapeutic product ineffective [None]
  - Movement disorder [None]
  - Medical device complication [None]
  - Blood cholesterol increased [None]
  - Drug withdrawal syndrome [None]
  - Urinary tract infection [None]
  - Decreased activity [None]
  - Cardiac disorder [None]
  - Spinal fracture [None]
  - Hypophagia [None]
  - Femur fracture [None]
